FAERS Safety Report 7934106-7 (Version None)
Quarter: 2011Q4

REPORT INFORMATION
  Report Type: 
  Country: None (occurrence: None)
  Receive Date: 20111122
  Receipt Date: 20111107
  Transmission Date: 20120403
  Serious: No
  Sender: FDA-Public Use
  Company Number: US-B.I. PHARMACEUTICALS,INC./RIDGEFIELD-2011-BP-25738BP

PATIENT
  Age: 76 Year
  Sex: Male

DRUGS (5)
  1. ALPHAGAN [Concomitant]
     Indication: GLAUCOMA
     Route: 047
  2. COMBIVENT [Suspect]
     Indication: BRONCHITIS CHRONIC
     Dosage: 8 PUF
     Route: 055
     Dates: start: 20110919
  3. XALATAN [Concomitant]
     Indication: GLAUCOMA
     Route: 047
  4. PRAVASTATIN [Concomitant]
     Indication: BLOOD CHOLESTEROL INCREASED
     Route: 048
  5. PROPRANOLOL [Concomitant]
     Indication: HYPERTENSION
     Route: 048

REACTIONS (1)
  - THROAT TIGHTNESS [None]
